FAERS Safety Report 15000480 (Version 1)
Quarter: 2018Q2

REPORT INFORMATION
  Report Type: Spontaneous
  Country: GB (occurrence: GB)
  Receive Date: 20180612
  Receipt Date: 20180612
  Transmission Date: 20180711
  Serious: Yes (Other)
  Sender: FDA-Public Use
  Company Number: GB-TEVA-2018-GB-905198

PATIENT
  Age: 41 Year
  Sex: Female
  Weight: 78 kg

DRUGS (7)
  1. INHALERS [Concomitant]
     Active Substance: UNSPECIFIED INGREDIENT
     Route: 065
  2. LANSOPRAZOLE. [Concomitant]
     Active Substance: LANSOPRAZOLE
     Route: 065
  3. PARACETAMOL [Concomitant]
     Active Substance: ACETAMINOPHEN
     Route: 065
  4. TAPENTADOL [Concomitant]
     Active Substance: TAPENTADOL
  5. GAVISCON ADVANCE [Concomitant]
     Active Substance: POTASSIUM BICARBONATE\SODIUM ALGINATE
     Route: 065
  6. DOXYCYCLINE. [Suspect]
     Active Substance: DOXYCYCLINE
     Indication: TONSILLITIS
     Dosage: TWO TABLETS TO BEGIN WITH, FOLLOWED BY 1 A DAY FOR 7 DAYS.
     Route: 048
     Dates: end: 20180329
  7. TAPENTADOL [Concomitant]
     Active Substance: TAPENTADOL
     Route: 065

REACTIONS (5)
  - Dry skin [Not Recovered/Not Resolved]
  - Oral candidiasis [Not Recovered/Not Resolved]
  - Skin exfoliation [Not Recovered/Not Resolved]
  - Dry mouth [Recovering/Resolving]
  - Vulvovaginal candidiasis [Not Recovered/Not Resolved]

NARRATIVE: CASE EVENT DATE: 20180328
